FAERS Safety Report 5451528-7 (Version None)
Quarter: 2007Q3

REPORT INFORMATION
  Report Type: 
  Country: None (occurrence: None)
  Receive Date: 20070913
  Receipt Date: 20070910
  Transmission Date: 20080115
  Serious: Yes (Death, Other)
  Sender: FDA-Public Use
  Company Number: HQWYE085910SEP07

PATIENT
  Sex: Female

DRUGS (1)
  1. CORDARONE [Suspect]
     Indication: TACHYCARDIA
     Dosage: DOSE AND FREQUENCY NOT SPECIFIED
     Route: 065

REACTIONS (4)
  - HYPOTHYROIDISM [None]
  - MALAISE [None]
  - RENAL FAILURE [None]
  - SINOATRIAL BLOCK [None]
